FAERS Safety Report 17883784 (Version 1)
Quarter: 2020Q2

REPORT INFORMATION
  Report Type: Spontaneous
  Country: US (occurrence: US)
  Receive Date: 20200610
  Receipt Date: 20200610
  Transmission Date: 20200714
  Serious: No
  Sender: FDA-Public Use
  Company Number: None

PATIENT
  Age: 64 Year
  Sex: Female
  Weight: 77.56 kg

DRUGS (3)
  1. ORENCIA [Suspect]
     Active Substance: ABATACEPT
     Indication: RHEUMATOID ARTHRITIS
     Route: 058
     Dates: start: 201906
  2. ORENCIA [Suspect]
     Active Substance: ABATACEPT
     Indication: MYALGIA
     Route: 058
     Dates: start: 201906
  3. ORENCIA [Suspect]
     Active Substance: ABATACEPT
     Indication: MYALGIA

REACTIONS (3)
  - Contusion [None]
  - Fall [None]
  - Head injury [None]
